FAERS Safety Report 5155774-1 (Version None)
Quarter: 2006Q4

REPORT INFORMATION
  Report Type: 
  Country: None (occurrence: None)
  Receive Date: 20061114
  Receipt Date: 20061101
  Transmission Date: 20070319
  Serious: Yes (Death)
  Sender: FDA-Public Use
  Company Number: HQWYE385903NOV06

PATIENT
  Age: 36 Year
  Sex: 0

DRUGS (3)
  1. INDERAL [Suspect]
  2. BUPROPION HYDROCHLORIDE [Suspect]
  3. TRAZODONE HCL [Suspect]

REACTIONS (4)
  - CARDIAC ARREST [None]
  - COMPLETED SUICIDE [None]
  - MULTIPLE DRUG OVERDOSE INTENTIONAL [None]
  - RESPIRATORY ARREST [None]
